FAERS Safety Report 7430465-2 (Version None)
Quarter: 2011Q2

REPORT INFORMATION
  Report Type: 
  Country: None (occurrence: None)
  Receive Date: 20110421
  Receipt Date: 20100616
  Transmission Date: 20111010
  Serious: No
  Sender: FDA-Public Use
  Company Number: US-ASTRAZENECA-2010SE28304

PATIENT
  Age: 78 Year
  Sex: Male
  Weight: 95.3 kg

DRUGS (3)
  1. DILTIAZEM [Concomitant]
     Indication: CARDIAC DISORDER
  2. METOPROLOL SUCCINATE [Suspect]
     Indication: CARDIAC DISORDER
     Route: 048
  3. WARFARIN [Concomitant]
     Indication: CARDIAC DISORDER

REACTIONS (3)
  - NAUSEA [None]
  - MALAISE [None]
  - CHEST PAIN [None]
